FAERS Safety Report 20137157 (Version 2)
Quarter: 2021Q4

REPORT INFORMATION
  Report Type: Spontaneous
  Country: US (occurrence: US)
  Receive Date: 20211201
  Receipt Date: 20211213
  Transmission Date: 20220303
  Serious: Yes (Death, Life-Threatening, Hospitalization)
  Sender: FDA-Public Use
  Company Number: US-TEVA-2021-US-1982281

PATIENT
  Age: 88 Year
  Sex: Male

DRUGS (5)
  1. DOXYCYCLINE [Suspect]
     Active Substance: DOXYCYCLINE
     Indication: Abscess limb
     Dosage: FOR 5 DAYS
     Route: 065
  2. DOXYCYCLINE [Suspect]
     Active Substance: DOXYCYCLINE
     Indication: Corynebacterium infection
  3. DOXYCYCLINE [Suspect]
     Active Substance: DOXYCYCLINE
     Indication: Escherichia infection
  4. DOXYCYCLINE [Suspect]
     Active Substance: DOXYCYCLINE
     Indication: Staphylococcal infection
  5. PREDNISONE [Suspect]
     Active Substance: PREDNISONE
     Indication: Post infection glomerulonephritis
     Dosage: 1 MG/KG DAILY;
     Route: 065

REACTIONS (3)
  - Post infection glomerulonephritis [Fatal]
  - Uraemic encephalopathy [Fatal]
  - Drug ineffective [Unknown]
